FAERS Safety Report 15215821 (Version 1)
Quarter: 2018Q3

REPORT INFORMATION
  Report Type: Spontaneous
  Country: US (occurrence: US)
  Receive Date: 20180703
  Receipt Date: 20180703
  Transmission Date: 20181010
  Serious: Yes (Life-Threatening, Hospitalization, Other)
  Sender: FDA-Public Use
  Company Number: None

PATIENT
  Sex: Male
  Weight: 74.25 kg

DRUGS (1)
  1. INVOKANA [Suspect]
     Active Substance: CANAGLIFLOZIN
     Dosage: ?          QUANTITY:1 CAPSULE(S);?

REACTIONS (3)
  - Diabetic ketoacidosis [None]
  - Product substitution issue [None]
  - Type 1 diabetes mellitus [None]
